FAERS Safety Report 7012941-X (Version None)
Quarter: 2010Q3

REPORT INFORMATION
  Report Type: 
  Country: None (occurrence: None)
  Receive Date: 20100924
  Receipt Date: 20100914
  Transmission Date: 20110219
  Serious: No
  Sender: FDA-Public Use
  Company Number: US-JNJFOC-20100904873

PATIENT
  Sex: Male
  Weight: 86.18 kg

DRUGS (3)
  1. FENTANYL [Suspect]
     Indication: PAIN
     Route: 062
     Dates: start: 20100914
  2. LORTAB [Concomitant]
     Indication: BREAKTHROUGH PAIN
     Route: 065
     Dates: start: 20100914
  3. NORVASC [Concomitant]
     Indication: HYPERTENSION
     Route: 048

REACTIONS (2)
  - DEVICE DAMAGE [None]
  - WRONG TECHNIQUE IN DRUG USAGE PROCESS [None]
